FAERS Safety Report 11935717 (Version 1)
Quarter: 2016Q1

REPORT INFORMATION
  Report Type: Report from Study
  Country: CA (occurrence: CA)
  Receive Date: 20160121
  Receipt Date: 20160121
  Transmission Date: 20160526
  Serious: Yes (Death, Other)
  Sender: FDA-Public Use
  Company Number: PHHY2015CA170548

PATIENT
  Age: 73 Year
  Sex: Female

DRUGS (3)
  1. DILTIAZEM [Concomitant]
     Active Substance: DILTIAZEM
     Indication: PRODUCT USED FOR UNKNOWN INDICATION
     Route: 065
  2. SANDOSTATIN [Suspect]
     Active Substance: OCTREOTIDE ACETATE
     Indication: CARCINOID TUMOUR
     Dosage: 100 UG, BID
     Route: 058
     Dates: start: 20151212
  3. SANDOSTATIN LAR DEPOT [Suspect]
     Active Substance: OCTREOTIDE ACETATE
     Indication: CARCINOID TUMOUR
     Dosage: 20 MG, QMO
     Route: 030
     Dates: start: 20151227

REACTIONS (8)
  - Metastases to liver [Unknown]
  - Metastases to pancreas [Unknown]
  - Pain [Recovering/Resolving]
  - Discomfort [Unknown]
  - Cancer pain [Recovering/Resolving]
  - Malignant neoplasm progression [Unknown]
  - Mass [Unknown]
  - Death [Fatal]

NARRATIVE: CASE EVENT DATE: 201512
